FAERS Safety Report 4659162-3 (Version None)
Quarter: 2005Q2

REPORT INFORMATION
  Report Type: 
  Country: None (occurrence: None)
  Receive Date: 20050510
  Receipt Date: 20050427
  Transmission Date: 20051028
  Serious: Yes (Other)
  Sender: FDA-Public Use
  Company Number: 2005AL001589

PATIENT
  Age: 63 Year
  Sex: Female

DRUGS (2)
  1. OXAZEPAM [Suspect]
     Indication: DEPRESSION
     Dosage: PRN   PO
     Route: 048
     Dates: start: 20040810, end: 20050101
  2. OXAZEPAM [Suspect]
     Indication: DEPRESSION
     Dosage: PRN   PO
     Route: 048
     Dates: start: 20050101

REACTIONS (11)
  - BURNING SENSATION [None]
  - DRUG ABUSER [None]
  - FEELING ABNORMAL [None]
  - INCORRECT ROUTE OF DRUG ADMINISTRATION [None]
  - PHARMACEUTICAL PRODUCT COMPLAINT [None]
  - SCREAMING [None]
  - SUICIDAL IDEATION [None]
  - THINKING ABNORMAL [None]
  - THROAT IRRITATION [None]
  - THROAT TIGHTNESS [None]
  - TREATMENT NONCOMPLIANCE [None]
